FAERS Safety Report 18592201 (Version 1)
Quarter: 2020Q4

REPORT INFORMATION
  Report Type: Spontaneous
  Country: FR (occurrence: FR)
  Receive Date: 20201208
  Receipt Date: 20201208
  Transmission Date: 20210114
  Serious: Yes (Hospitalization, Other)
  Sender: FDA-Public Use
  Company Number: FR-BRISTOL-MYERS SQUIBB COMPANY-BMS-2020-102794

PATIENT
  Age: 63 Year
  Sex: Male
  Weight: 52 kg

DRUGS (6)
  1. DEXAMETHASONE. [Concomitant]
     Active Substance: DEXAMETHASONE
     Indication: PLASMA CELL MYELOMA
     Dosage: 6 DOSAGE FORM, CYCLICAL
     Route: 048
     Dates: start: 20200301
  2. ZELITREX [Suspect]
     Active Substance: VALACYCLOVIR HYDROCHLORIDE
     Indication: INFECTION PROPHYLAXIS
     Dosage: 500 MG PER DAY
     Route: 048
     Dates: start: 20200211
  3. LEDERFOLINE [Concomitant]
     Active Substance: LEUCOVORIN CALCIUM
     Indication: ANAEMIA PROPHYLAXIS
     Dosage: 25 MILLIGRAM, QD
     Route: 048
     Dates: start: 20200211
  4. KYPROLIS [Suspect]
     Active Substance: CARFILZOMIB
     Indication: PLASMA CELL MYELOMA
     Dosage: 86 MILLIGRAM CYCLICAL
     Route: 042
     Dates: start: 20200309, end: 20201026
  5. ELIQUIS [Suspect]
     Active Substance: APIXABAN
     Indication: DEEP VEIN THROMBOSIS
     Dosage: 5 MILIGRAM PER DAY
     Route: 048
     Dates: start: 20190101, end: 20201102
  6. BACTRIM [Suspect]
     Active Substance: SULFAMETHOXAZOLE\TRIMETHOPRIM
     Indication: INFECTION PROPHYLAXIS
     Dosage: 3 DOSAGE FORM PER SECOND
     Route: 048
     Dates: start: 20200211

REACTIONS (5)
  - Renal impairment [Recovering/Resolving]
  - Thrombocytopenia [Recovering/Resolving]
  - Hypertension [Not Recovered/Not Resolved]
  - Thrombotic microangiopathy [Not Recovered/Not Resolved]
  - Haemolytic anaemia [Not Recovered/Not Resolved]

NARRATIVE: CASE EVENT DATE: 20201102
